FAERS Safety Report 7772097-2 (Version None)
Quarter: 2011Q3

REPORT INFORMATION
  Report Type: 
  Country: None (occurrence: None)
  Receive Date: 20110922
  Receipt Date: 20110124
  Transmission Date: 20111222
  Serious: No
  Sender: FDA-Public Use
  Company Number: US-ASTRAZENECA-2011SE04272

PATIENT
  Age: 52 Year
  Sex: Male
  Weight: 120.2 kg

DRUGS (6)
  1. SEROQUEL [Suspect]
     Indication: BIPOLAR DISORDER
     Route: 048
     Dates: start: 20050101
  2. DILANTIN [Concomitant]
  3. AMLODIPINE [Concomitant]
  4. ATENOLOL [Concomitant]
  5. PLAVIX [Concomitant]
  6. SEROQUEL [Suspect]
     Route: 048

REACTIONS (4)
  - TOOTH EXTRACTION [None]
  - ORAL PAIN [None]
  - TOOTH DISORDER [None]
  - DIABETES MELLITUS [None]
